FAERS Safety Report 8796418 (Version 1)
Quarter: 2012Q4

REPORT INFORMATION
  Report Type: 
  Country: AU (occurrence: AU)
  Receive Date: 20120920
  Receipt Date: 20120920
  Transmission Date: 20130627
  Serious: Yes (Other)
  Sender: FDA-Public Use
  Company Number: PHHY2012AU081226

PATIENT
  Age: 54 Year
  Sex: Female

DRUGS (1)
  1. ACLASTA [Suspect]
     Dosage: UNK
     Route: 042
     Dates: start: 20120913

REACTIONS (12)
  - Irritable bowel syndrome [Unknown]
  - Colitis ulcerative [Unknown]
  - Feeling of body temperature change [Unknown]
  - Aphagia [Unknown]
  - Oral mucosal blistering [Unknown]
  - Oral discomfort [Unknown]
  - Chills [Unknown]
  - Pain [Unknown]
  - Abdominal pain upper [Unknown]
  - Malaise [Unknown]
  - Influenza like illness [Recovering/Resolving]
  - Nausea [Unknown]
